FAERS Safety Report 17585737 (Version 2)
Quarter: 2022Q2

REPORT INFORMATION
  Report Type: Report from Study
  Country: US (occurrence: US)
  Receive Date: 20200326
  Receipt Date: 20220513
  Transmission Date: 20220720
  Serious: Yes (Other)
  Sender: FDA-Public Use
  Company Number: US-HARMONY BIOSCIENCES-2020HMY00241

PATIENT
  Age: 36 Year
  Sex: Female

DRUGS (2)
  1. WAKIX [Suspect]
     Active Substance: PITOLISANT HYDROCHLORIDE
     Dosage: UNK
     Dates: start: 20200303, end: 20200307
  2. WAKIX [Suspect]
     Active Substance: PITOLISANT HYDROCHLORIDE
     Dosage: UNK
     Dates: start: 20200303, end: 20200307

REACTIONS (15)
  - Anaphylactic reaction [Recovered/Resolved]
  - Lip swelling [Recovered/Resolved]
  - Oral discomfort [Recovered/Resolved]
  - Swollen tongue [Recovered/Resolved]
  - Chest pain [Recovered/Resolved]
  - Wheezing [Recovered/Resolved]
  - Aphonia [Recovered/Resolved]
  - Pruritus [Recovered/Resolved]
  - Fibrin D dimer increased [Recovered/Resolved]
  - Mood altered [Unknown]
  - Mania [Recovered/Resolved]
  - Anxiety [Recovered/Resolved]
  - Musculoskeletal pain [Unknown]
  - Migraine [Recovered/Resolved]
  - Arthralgia [Recovered/Resolved]

NARRATIVE: CASE EVENT DATE: 20200301
